FAERS Safety Report 9739514 (Version 2)
Quarter: 2013Q4

REPORT INFORMATION
  Report Type: Spontaneous
  Country: JP (occurrence: JP)
  Receive Date: 20131209
  Receipt Date: 20131209
  Transmission Date: 20140711
  Serious: Yes (Hospitalization)
  Sender: FDA-Public Use
  Company Number: JP-AMGEN-JPNCT2012042279

PATIENT
  Age: 67 Year
  Sex: Male

DRUGS (4)
  1. VECTIBIX [Suspect]
     Indication: COLORECTAL CANCER
     Dosage: 6 MG/KG, Q2WK
     Route: 041
     Dates: start: 20120313, end: 20120630
  2. OXALIPLATIN [Concomitant]
     Indication: COLORECTAL CANCER
     Dosage: UNK UNK, Q2WK
     Route: 041
     Dates: start: 20120313
  3. FLUOROURACIL [Concomitant]
     Indication: COLORECTAL CANCER
     Dosage: UNK, 2 SEPARATE DOSAGES IN THE INTERVAL OF 2 WEEKS
     Route: 042
     Dates: start: 20120313
  4. CALCIUM LEVOFOLINATE [Concomitant]
     Indication: COLORECTAL CANCER
     Dosage: UNK, 2 SEPARATE DOSAGES IN THE INTERVAL OF 2 WEEKS
     Route: 041
     Dates: start: 20120313

REACTIONS (3)
  - Phlebitis [Unknown]
  - Catheter site infection [Unknown]
  - Endophthalmitis [Recovering/Resolving]
